FAERS Safety Report 5662105-7 (Version None)
Quarter: 2008Q1

REPORT INFORMATION
  Report Type: 
  Country: None (occurrence: None)
  Receive Date: 20080212
  Receipt Date: 20070806
  Transmission Date: 20080703
  Serious: Yes (Other)
  Sender: FDA-Public Use
  Company Number: 10660

PATIENT
  Age: 82 Year
  Sex: Female

DRUGS (1)
  1. SCANDONEST L [Suspect]
     Indication: LOCAL ANAESTHESIA

REACTIONS (1)
  - NERVOUS SYSTEM DISORDER [None]
